FAERS Safety Report 24941287 (Version 1)
Quarter: 2025Q1

REPORT INFORMATION
  Report Type: Spontaneous
  Country: US (occurrence: US)
  Receive Date: 20250207
  Receipt Date: 20250207
  Transmission Date: 20250409
  Serious: No
  Sender: ALEXION PHARMACEUTICALS
  Company Number: US-AstraZeneca-CH-00802213AP

PATIENT

DRUGS (1)
  1. BREZTRI [Suspect]
     Active Substance: BUDESONIDE\FORMOTEROL\GLYCOPYRROLATE
     Indication: Asthma
     Route: 065

REACTIONS (6)
  - Wrong technique in device usage process [Unknown]
  - Contraindicated device used [Unknown]
  - Off label use [Unknown]
  - Incorrect dose administered by device [Unknown]
  - Memory impairment [Unknown]
  - Device leakage [Unknown]
